FAERS Safety Report 8810135 (Version 2)
Quarter: 2012Q4

REPORT INFORMATION
  Report Type: Report from Study
  Country: US (occurrence: US)
  Receive Date: 20120926
  Receipt Date: 20121107
  Transmission Date: 20130627
  Serious: Yes (Other)
  Sender: FDA-Public Use
  Company Number: US-US-EMD SERONO, INC.-7162415

PATIENT
  Sex: Male

DRUGS (5)
  1. REBIF [Suspect]
     Indication: MULTIPLE SCLEROSIS
     Route: 058
     Dates: start: 20110311, end: 201204
  2. REBIF [Suspect]
     Route: 058
     Dates: start: 201206
  3. TYLENOL [Suspect]
     Indication: PREMEDICATION
     Dates: end: 201204
  4. ALEVE [Suspect]
     Indication: PREMEDICATION
     Dates: end: 201204
  5. IBUPROFEN [Suspect]
     Indication: PREMEDICATION
     Dates: end: 201204

REACTIONS (9)
  - Hepatic enzyme increased [Recovered/Resolved]
  - Memory impairment [Not Recovered/Not Resolved]
  - Feeling hot [Not Recovered/Not Resolved]
  - Malaise [Not Recovered/Not Resolved]
  - Multiple sclerosis [Not Recovered/Not Resolved]
  - Muscular weakness [Not Recovered/Not Resolved]
  - Pain in extremity [Not Recovered/Not Resolved]
  - Injection site erythema [Not Recovered/Not Resolved]
  - Headache [Not Recovered/Not Resolved]
